FAERS Safety Report 9491443 (Version 2)
Quarter: 2013Q1

REPORT INFORMATION
  Report Type: Not Available
  Country: US (occurrence: US)
  Receive Date: 20120619
  Receipt Date: 20120619
  Transmission Date: 20140127
  Serious: No
  Sender: FDA-Public Use
  Company Number: US-LUNDBECK-DKLU1076598

PATIENT
  Sex: Male

DRUGS (4)
  1. ONFI [Suspect]
     Indication: CONVULSION
     Route: 048
     Dates: start: 20120203
  2. ONFI [Suspect]
     Indication: EPILEPSY
     Dates: start: 20121001
  3. LAMICTAL [Concomitant]
     Indication: PRODUCT USED FOR UNKNOWN INDICATION
  4. VIMPAT [Concomitant]
     Indication: PRODUCT USED FOR UNKNOWN INDICATION

REACTIONS (2)
  - Disturbance in attention [Unknown]
  - Drug ineffective [Unknown]
